FAERS Safety Report 4725494-3 (Version None)
Quarter: 2005Q3

REPORT INFORMATION
  Report Type: 
  Country: None (occurrence: None)
  Receive Date: 20050727
  Receipt Date: 20050718
  Transmission Date: 20060218
  Serious: Yes (Hospitalization, Other)
  Sender: FDA-Public Use
  Company Number: GB-JNJFOC-20050703650

PATIENT
  Sex: Male
  Weight: 53 kg

DRUGS (13)
  1. REMICADE [Suspect]
     Indication: RHEUMATOID ARTHRITIS
     Route: 042
  2. METHOTREXATE [Concomitant]
     Route: 065
  3. FOLIC ACID [Concomitant]
     Route: 065
  4. LISINOPRIL [Concomitant]
     Route: 065
  5. OXYBUTYMIN [Concomitant]
     Route: 065
  6. VENLAFAXINE HCL [Concomitant]
     Route: 065
  7. BACLOFEN [Concomitant]
     Route: 065
  8. NEFOPAM [Concomitant]
     Route: 065
  9. LANSOPRAZOLE [Concomitant]
     Route: 065
  10. DICONAL [Concomitant]
     Route: 065
  11. DICONAL [Concomitant]
     Route: 065
  12. ACETAMINOPHEN W/ CODEINE [Concomitant]
     Route: 065
  13. ACETAMINOPHEN W/ CODEINE [Concomitant]
     Route: 065

REACTIONS (1)
  - HYPONATRAEMIA [None]
